FAERS Safety Report 20052324 (Version 1)
Quarter: 2021Q4

REPORT INFORMATION
  Report Type: Spontaneous
  Country: US (occurrence: US)
  Receive Date: 20211110
  Receipt Date: 20211110
  Transmission Date: 20220303
  Serious: No
  Sender: FDA-Public Use
  Company Number: US-SA-SAC20211109000396

PATIENT
  Age: 37 Year
  Sex: Male

DRUGS (8)
  1. DUPIXENT [Suspect]
     Active Substance: DUPILUMAB
     Indication: Dermatitis atopic
     Dosage: 300MG/2ML, 300 MG, QOW
     Route: 058
     Dates: start: 2017
  2. DUPIXENT [Suspect]
     Active Substance: DUPILUMAB
     Dosage: 300 MG, QW
     Route: 058
     Dates: start: 2019
  3. RESTASIS [Concomitant]
     Active Substance: CYCLOSPORINE
  4. ZYRTEC [Concomitant]
     Active Substance: CETIRIZINE HYDROCHLORIDE
  5. VITAMINS [Concomitant]
     Active Substance: VITAMINS
  6. TIMOPTIC [Concomitant]
     Active Substance: TIMOLOL MALEATE
     Dosage: DROPS
  7. CYCLOSPORINE [Concomitant]
     Active Substance: CYCLOSPORINE
     Dosage: 100MG
  8. CELLCEPT [Concomitant]
     Active Substance: MYCOPHENOLATE MOFETIL\MYCOPHENOLATE MOFETIL HYDROCHLORIDE
     Dosage: 250MG

REACTIONS (2)
  - Eczema [Unknown]
  - Intentional product use issue [Unknown]

NARRATIVE: CASE EVENT DATE: 20190101
